FAERS Safety Report 5120702-1 (Version None)
Quarter: 2006Q4

REPORT INFORMATION
  Report Type: 
  Country: None (occurrence: None)
  Receive Date: 20061004
  Receipt Date: 20051021
  Transmission Date: 20070319
  Serious: Yes (Hospitalization, Other)
  Sender: FDA-Public Use
  Company Number: FI-ABBOTT-05P-055-0314949-00

PATIENT
  Sex: Female

DRUGS (12)
  1. HUMIRA [Suspect]
     Indication: RHEUMATOID ARTHRITIS
     Route: 058
     Dates: start: 20050623, end: 20050809
  2. NALTREXONE HYDROCHLORIDE [Concomitant]
     Indication: DRUG USE FOR UNKNOWN INDICATION
     Route: 058
     Dates: start: 19970201
  3. COHEMIN [Concomitant]
     Indication: DRUG USE FOR UNKNOWN INDICATION
     Route: 030
  4. ACETAMINOPHEN [Concomitant]
     Indication: PAIN
     Dosage: 1G X 1-3 VS X 4, BP X 2
     Route: 048
     Dates: start: 20000101
  5. LISINOPRIL [Concomitant]
     Indication: BLOOD PRESSURE
     Dosage: 1 + 1/2 TAB
     Route: 048
     Dates: start: 20000101
  6. AMOROLFINE [Concomitant]
     Indication: DRUG USE FOR UNKNOWN INDICATION
  7. LISINOPRIL [Concomitant]
     Indication: DRUG USE FOR UNKNOWN INDICATION
  8. ASPIRIN [Concomitant]
     Indication: DRUG USE FOR UNKNOWN INDICATION
  9. METOCLOPRAMIDE [Concomitant]
     Indication: NAUSEA
     Dosage: 10 MG X 1-3
  10. PANTOPRAZOLE SODIUM [Concomitant]
     Indication: PROPHYLAXIS AGAINST GASTROINTESTINAL ULCER
  11. METHOTREXATE [Concomitant]
     Indication: DRUG USE FOR UNKNOWN INDICATION
     Dates: end: 20050806
  12. CLOPIDOGREL BISULFATE [Concomitant]
     Indication: CEREBROVASCULAR ACCIDENT PROPHYLAXIS

REACTIONS (7)
  - ASTHENIA [None]
  - CEREBELLAR INFARCTION [None]
  - DYSARTHRIA [None]
  - HEADACHE [None]
  - HYPOAESTHESIA [None]
  - PARAESTHESIA ORAL [None]
  - VERTIGO [None]
